FAERS Safety Report 19584871 (Version 1)
Quarter: 2021Q3

REPORT INFORMATION
  Report Type: Report from Study
  Country: US (occurrence: US)
  Receive Date: 20210720
  Receipt Date: 20210720
  Transmission Date: 20211014
  Serious: Yes (Life-Threatening)
  Sender: FDA-Public Use
  Company Number: US-MYLANLABS-2021M1044397

PATIENT
  Sex: Female

DRUGS (3)
  1. BEVACIZUMAB. [Suspect]
     Active Substance: BEVACIZUMAB
     Indication: OVARIAN CANCER
     Dosage: 5 MILLIGRAM/KILOGRAM, BIWEEKLY
     Route: 042
  2. PACLITAXEL. [Suspect]
     Active Substance: PACLITAXEL
     Indication: OVARIAN CANCER
     Dosage: ADMINISTERED IN A 28 DAY CYCLE
     Route: 042
  3. SORAFENIB [Suspect]
     Active Substance: SORAFENIB
     Indication: OVARIAN CANCER
     Dosage: ADMINISTERED FOR SEVEN DAYS PER WEEK (7/7)
     Route: 048

REACTIONS (2)
  - Large intestine perforation [Unknown]
  - Bladder perforation [Unknown]
